FAERS Safety Report 4560584-X (Version None)
Quarter: 2005Q1

REPORT INFORMATION
  Report Type: 
  Country: None (occurrence: None)
  Receive Date: 20050125
  Receipt Date: 20050114
  Transmission Date: 20050727
  Serious: Yes (Hospitalization, Other)
  Sender: FDA-Public Use
  Company Number: CA-ABBOTT-05P-028-0287666-00

PATIENT
  Sex: Female
  Weight: 63.56 kg

DRUGS (24)
  1. MAVIK [Suspect]
     Indication: DRUG USE FOR UNKNOWN INDICATION
  2. TARKA [Suspect]
     Indication: DRUG USE FOR UNKNOWN INDICATION
     Dates: end: 20041126
  3. VERAPAMIL [Suspect]
     Indication: DRUG USE FOR UNKNOWN INDICATION
  4. UNSPECIFIED HYPERTENSION MEDICATION [Suspect]
     Indication: HYPERTENSION
  5. HYDROCHLOROTHIAZIDE [Concomitant]
     Indication: HYPERTENSION
     Dates: end: 20040621
  6. HYDROCHLOROTHIAZIDE [Concomitant]
     Dates: start: 20040621
  7. TRIAMTERENE [Concomitant]
     Indication: HYPERTENSION
     Dates: start: 19800621
  8. GALENIC /PARACETAMOL/CODEINE/ [Concomitant]
     Indication: OSTEOARTHRITIS
     Dosage: 325 MG/30 MG
     Dates: start: 19990714
  9. ACETYLSALICYLIC ACID SRT [Concomitant]
     Indication: HYPERTENSION
     Dates: start: 19800621
  10. ALBUTEROL [Concomitant]
     Indication: CHRONIC OBSTRUCTIVE PULMONARY DISEASE
     Route: 055
     Dates: start: 19800621
  11. TIMOLOL MALEATE [Concomitant]
     Indication: DRUG USE FOR UNKNOWN INDICATION
  12. ISOSORBIDE DINITRATE [Concomitant]
     Indication: CORONARY ARTERY DISEASE
  13. IPATROPIUM BROMIDE [Concomitant]
     Indication: ASTHMA
  14. IPATROPIUM BROMIDE [Concomitant]
     Indication: COUGH
  15. ALBUTEROL [Concomitant]
     Indication: ASTHMA
  16. ALBUTEROL [Concomitant]
     Indication: COUGH
  17. POTASSIUM CHLORIDE [Concomitant]
     Indication: DRUG USE FOR UNKNOWN INDICATION
  18. POTASSIUM CHLORIDE [Concomitant]
     Dates: start: 20041015, end: 20041015
  19. NITRO-DUR [Concomitant]
     Indication: CORONARY ARTERY DISEASE
  20. UNIDET [Concomitant]
     Indication: DRUG USE FOR UNKNOWN INDICATION
  21. ACETAMINOPHEN [Concomitant]
     Indication: DRUG USE FOR UNKNOWN INDICATION
  22. ALENDRONATE SODIUM [Concomitant]
     Indication: OSTEOPOROSIS
  23. FLUTICASONE PROPIONATE [Concomitant]
     Indication: ASTHMA
     Dates: start: 20001129
  24. SALMETEROL [Concomitant]
     Indication: ASTHMA
     Dates: start: 20001129

REACTIONS (6)
  - BILE DUCT STONE [None]
  - CHOLANGITIS ACUTE [None]
  - ORTHOSTATIC HYPOTENSION [None]
  - RESTLESS LEGS SYNDROME [None]
  - UPPER RESPIRATORY TRACT INFECTION [None]
  - URINARY INCONTINENCE [None]
